FAERS Safety Report 5254891-5 (Version None)
Quarter: 2007Q1

REPORT INFORMATION
  Report Type: 
  Country: None (occurrence: None)
  Receive Date: 20070305
  Receipt Date: 20070220
  Transmission Date: 20070707
  Serious: Yes (Other)
  Sender: FDA-Public Use
  Company Number: PHNU2006DE04191

PATIENT
  Age: 67 Year
  Sex: Female

DRUGS (8)
  1. ZOMETA [Suspect]
     Indication: METASTASES TO BONE
     Dosage: 4 MG, QMO
     Route: 042
     Dates: start: 20050415
  2. ARIMIDEX [Concomitant]
     Indication: BREAST CANCER METASTATIC
     Dosage: 1 MG, QD
     Route: 048
     Dates: start: 20030301
  3. NEXIUM [Concomitant]
     Dosage: 40 MG, QD
     Route: 048
  4. KALINOR [Concomitant]
     Dosage: 1 DF, BID
     Route: 048
  5. TORSEMIDE [Concomitant]
     Dosage: 1 DF, BID
     Route: 065
  6. DOXEPIN HCL [Concomitant]
     Indication: ANXIETY DISORDER
     Dosage: 1 DF, TID
     Route: 048
  7. LORAZEPAM [Concomitant]
     Indication: ANXIETY DISORDER
     Dosage: 1 DF - 0.5 DF - 1 DF/DAY
     Route: 065
  8. DURAGESIC-100 [Concomitant]
     Dosage: 100 UNK, BID
     Route: 062

REACTIONS (7)
  - EXCESSIVE GRANULATION TISSUE [None]
  - LIP AND/OR ORAL CAVITY CANCER [None]
  - MALIGNANT TUMOUR EXCISION [None]
  - OSTEONECROSIS [None]
  - SEQUESTRECTOMY [None]
  - SUTURE INSERTION [None]
  - TOOTH EXTRACTION [None]
